FAERS Safety Report 7769061-6 (Version None)
Quarter: 2011Q3

REPORT INFORMATION
  Report Type: 
  Country: None (occurrence: None)
  Receive Date: 20110922
  Receipt Date: 20110413
  Transmission Date: 20111222
  Serious: No
  Sender: FDA-Public Use
  Company Number: US-ASTRAZENECA-2009UW11337

PATIENT
  Age: 17 Year
  Sex: Male
  Weight: 185.1 kg

DRUGS (6)
  1. SEROQUEL [Suspect]
     Route: 048
     Dates: start: 20080301
  2. SEROQUEL [Suspect]
     Indication: AFFECTIVE DISORDER
     Route: 048
     Dates: start: 20020101
  3. SEROQUEL [Suspect]
     Route: 048
     Dates: start: 20080301
  4. LISINOPRIL [Concomitant]
     Dates: start: 20080301
  5. SEROQUEL [Suspect]
     Indication: ANXIETY
     Route: 048
     Dates: start: 20020101
  6. ATENOLOL [Concomitant]
     Dates: start: 20080301

REACTIONS (2)
  - DIABETES MELLITUS [None]
  - METABOLIC SYNDROME [None]
